FAERS Safety Report 24580292 (Version 1)
Quarter: 2024Q4

REPORT INFORMATION
  Report Type: Spontaneous
  Country: GB (occurrence: GB)
  Receive Date: 20241105
  Receipt Date: 20241105
  Transmission Date: 20250114
  Serious: Yes (Other)
  Sender: INSUD PHARMA
  Company Number: None

PATIENT
  Age: 51 Year
  Sex: Female

DRUGS (1)
  1. PROGESTERONE [Suspect]
     Active Substance: PROGESTERONE
     Dosage: 1 DOSAGE FORM, QD, 1 DAILY AT NIGHT
     Dates: start: 20240924

REACTIONS (1)
  - Vulval haemorrhage [Recovering/Resolving]
